FAERS Safety Report 14620544 (Version 1)
Quarter: 2018Q1

REPORT INFORMATION
  Report Type: Spontaneous
  Country: US (occurrence: US)
  Receive Date: 20180309
  Receipt Date: 20180309
  Transmission Date: 20180509
  Serious: No
  Sender: FDA-Public Use
  Company Number: US-SA-2017SA066727

PATIENT
  Age: 69 Year
  Weight: 94.9 kg

DRUGS (2)
  1. ELITEK [Suspect]
     Active Substance: RASBURICASE
     Indication: HYPERURICAEMIA
     Dosage: DOSE 3 MG IU
     Route: 042
     Dates: start: 20170410, end: 20170411
  2. ELITEK [Suspect]
     Active Substance: RASBURICASE
     Indication: HYPERURICAEMIA
     Dosage: DOSE 3 MG IU
     Route: 042
     Dates: start: 20170410, end: 20170411

REACTIONS (1)
  - Limb injury [Unknown]

NARRATIVE: CASE EVENT DATE: 20170410
